FAERS Safety Report 6857663-0 (Version None)
Quarter: 2010Q3

REPORT INFORMATION
  Report Type: 
  Country: None (occurrence: None)
  Receive Date: 20100719
  Receipt Date: 20080310
  Transmission Date: 20110219
  Serious: No
  Sender: FDA-Public Use
  Company Number: US-PFIZER INC-2008009175

PATIENT
  Sex: Female
  Weight: 57.272 kg

DRUGS (2)
  1. CHANTIX [Suspect]
     Indication: SMOKING CESSATION THERAPY
     Dates: start: 20070101, end: 20080123
  2. ZOLOFT [Concomitant]

REACTIONS (3)
  - ABDOMINAL PAIN UPPER [None]
  - AGEUSIA [None]
  - NAUSEA [None]
